FAERS Safety Report 6271571-8 (Version None)
Quarter: 2009Q3

REPORT INFORMATION
  Report Type: 
  Country: None (occurrence: None)
  Receive Date: 20090713
  Receipt Date: 20090302
  Transmission Date: 20100115
  Serious: Yes (Hospitalization)
  Sender: FDA-Public Use
  Company Number: 42061-1

PATIENT
  Sex: Female
  Weight: 60 kg

DRUGS (1)
  1. DACARBAZINE [Suspect]
     Indication: MALIGNANT MELANOMA
     Dosage: IV
     Route: 042
     Dates: start: 20070323

REACTIONS (1)
  - GASTRITIS [None]
